FAERS Safety Report 12810039 (Version 1)
Quarter: 2016Q4

REPORT INFORMATION
  Report Type: Report from Study
  Country: CA (occurrence: CA)
  Receive Date: 20161005
  Receipt Date: 20161005
  Transmission Date: 20170207
  Serious: Yes (Hospitalization, Other)
  Sender: FDA-Public Use
  Company Number: CA-ROCHE-696906

PATIENT
  Age: 53 Year
  Sex: Female

DRUGS (4)
  1. TEMSIROLIMUS [Suspect]
     Active Substance: TEMSIROLIMUS
     Dosage: ON DAYS 1, 8, 15 AND 22, LAST ADMINISTERED DATE: 19/JAN/2010
     Route: 042
  2. TEMSIROLIMUS [Suspect]
     Active Substance: TEMSIROLIMUS
     Indication: OVARIAN NEOPLASM
     Dosage: ON DAYS 1, 8, 15 AND 22; CYCLE: 28 DAYS, ALSO RECEIVED ON 22/DEC/2009
     Route: 042
  3. BEVACIZUMAB [Suspect]
     Active Substance: BEVACIZUMAB
     Dosage: OVER 30-90 MIN ON DAYS 1 AND 15 (CYCLE: 28 DAYS)
     Route: 042
     Dates: start: 20100119
  4. BEVACIZUMAB [Suspect]
     Active Substance: BEVACIZUMAB
     Indication: OVARIAN NEOPLASM
     Dosage: OVER 30-90 MIN ON DAYS 1 AND 15 (CYCLE: 28 DAYS), AT RATE 10 MG/KG, ALSO RECEIVED ON 22/DEC/2009
     Route: 042
     Dates: start: 20090924

REACTIONS (3)
  - Large intestine perforation [Unknown]
  - Hyperglycaemia [Unknown]
  - Blood cholesterol increased [Unknown]
